FAERS Safety Report 22090240 (Version 2)
Quarter: 2023Q1

REPORT INFORMATION
  Report Type: Report from Study
  Country: DE (occurrence: DE)
  Receive Date: 20230313
  Receipt Date: 20230314
  Transmission Date: 20230418
  Serious: Yes (Death, Other)
  Sender: FDA-Public Use
  Company Number: DE-JNJFOC-20230319264

PATIENT
  Age: 9 Decade
  Sex: Female
  Weight: 53 kg

DRUGS (3)
  1. BORTEZOMIB [Suspect]
     Active Substance: BORTEZOMIB
     Indication: Plasma cell myeloma
     Dosage: 1.3 MILLIGRAM
     Route: 065
     Dates: end: 20210603
  2. DARATUMUMAB [Suspect]
     Active Substance: DARATUMUMAB
     Indication: Plasma cell myeloma
     Dosage: 900 MILLIGRAM
     Route: 041
     Dates: start: 20210401
  3. DARATUMUMAB [Suspect]
     Active Substance: DARATUMUMAB
     Dosage: 750 MILLIGRAM
     Route: 041
     Dates: end: 20210603

REACTIONS (2)
  - Plasma cell myeloma [Fatal]
  - Pancytopenia [Fatal]

NARRATIVE: CASE EVENT DATE: 20210609
